FAERS Safety Report 6189770-2 (Version None)
Quarter: 2009Q2

REPORT INFORMATION
  Report Type: 
  Country: None (occurrence: None)
  Receive Date: 20090514
  Receipt Date: 20090512
  Transmission Date: 20091009
  Serious: Yes (Hospitalization, Other)
  Sender: FDA-Public Use
  Company Number: CH-JNJFOC-20090502531

PATIENT
  Age: 86 Year
  Sex: Female

DRUGS (6)
  1. TAVANIC [Suspect]
     Indication: PNEUMONIA BACTERIAL
     Route: 048
  2. DIOVAN [Concomitant]
     Route: 065
  3. SYMFONA N [Concomitant]
     Route: 065
  4. CITALOPRAM HYDROBROMIDE [Concomitant]
     Route: 065
  5. LEXOTANIL [Concomitant]
     Route: 065
  6. PANTOZOL [Concomitant]
     Route: 065

REACTIONS (2)
  - BURSITIS [None]
  - TENDONITIS [None]
